FAERS Safety Report 4782776-7 (Version None)
Quarter: 2005Q3

REPORT INFORMATION
  Report Type: 
  Country: None (occurrence: None)
  Receive Date: 20050927
  Receipt Date: 20050909
  Transmission Date: 20060218
  Serious: Yes (Hospitalization)
  Sender: FDA-Public Use
  Company Number: 200512974GDS

PATIENT
  Age: 64 Year
  Sex: Male

DRUGS (18)
  1. ASPIRIN [Suspect]
     Dosage: 200 MG, TOTAL DAILY, ORAL
     Route: 048
     Dates: start: 20050413, end: 20050708
  2. MICARDIS [Suspect]
     Indication: HYPERTENSION
     Dosage: 40 MG, TOTAL DAILY, ORAL
     Route: 048
     Dates: start: 20050523, end: 20050526
  3. METLIGINE (MIDODRINE HYDROCHLORIDE) [Suspect]
     Indication: PROCEDURAL HYPOTENSION
     Dosage: 4 MG, TOTAL DAILY, ORAL
     Route: 048
     Dates: start: 20050523, end: 20050606
  4. TICLOPIDINE HCL [Suspect]
     Dosage: 200 MG, TOTAL DAILY, ORAL
     Route: 048
     Dates: start: 20050413, end: 20050708
  5. PERSANTIN-L [Concomitant]
  6. KINEDAK [Concomitant]
  7. AMLODIPINE [Concomitant]
  8. ALLOTOP [Concomitant]
  9. COMESGEN [Concomitant]
  10. PROMEDES [Concomitant]
  11. DICHLOTRIDE [Concomitant]
  12. ISOSORBIDE MONONITRATE [Concomitant]
  13. ALLOPURINOL [Concomitant]
  14. LENDORMIN [Concomitant]
  15. PURSENNIDE [Concomitant]
  16. CYANOCOBALAMIN [Concomitant]
  17. LASIX [Concomitant]
  18. URSODIOL [Concomitant]

REACTIONS (1)
  - JAUNDICE [None]
